FAERS Safety Report 9819885 (Version 1)
Quarter: 2013Q1

REPORT INFORMATION
  Report Type: Spontaneous
  Country: US (occurrence: None)
  Receive Date: 20130107
  Receipt Date: 20130107
  Transmission Date: 20140127
  Serious: Yes (Other)
  Sender: FDA-Public Use
  Company Number: PHEH2012US019325

PATIENT
  Sex: Female

DRUGS (2)
  1. GILENYA [Suspect]
     Indication: MULTIPLE SCLEROSIS
     Route: 048
     Dates: start: 20110620
  2. FAMPRIDINE [Suspect]

REACTIONS (4)
  - Nasal discomfort [None]
  - Throat irritation [None]
  - Constipation [None]
  - Dyspepsia [None]
